FAERS Safety Report 5264004-1 (Version None)
Quarter: 2007Q1

REPORT INFORMATION
  Report Type: 
  Country: None (occurrence: None)
  Receive Date: 20061213
  Receipt Date: 20060221
  Transmission Date: 20070707
  Serious: Yes (Other)
  Sender: FDA-Public Use
  Company Number: 2006UW00910

PATIENT
  Age: 52 Year
  Sex: Male

DRUGS (2)
  1. IRESSA [Suspect]
     Indication: NON-SMALL CELL LUNG CANCER
     Dosage: 8250 MG DAILY PO
     Route: 048
     Dates: start: 20051201, end: 20060103
  2. CETUXIMAB [Suspect]
     Indication: NON-SMALL CELL LUNG CANCER
     Dosage: 2060 MG DAILY IV
     Route: 042
     Dates: start: 20051201, end: 20051229

REACTIONS (1)
  - HYPOMAGNESAEMIA [None]
